FAERS Safety Report 15923820 (Version 1)
Quarter: 2019Q1

REPORT INFORMATION
  Report Type: Spontaneous
  Country: CN (occurrence: CN)
  Receive Date: 20190206
  Receipt Date: 20190206
  Transmission Date: 20190417
  Serious: Yes (Life-Threatening, Hospitalization, Other)
  Sender: FDA-Public Use
  Company Number: CN-ASTELLAS-2019US004453

PATIENT
  Age: 5 Year
  Sex: Female

DRUGS (1)
  1. TACROLIMUS. [Suspect]
     Active Substance: TACROLIMUS
     Indication: ACUTE GRAFT VERSUS HOST DISEASE IN SKIN
     Dosage: UNK UNK, UNKNOWN FREQ.
     Route: 065

REACTIONS (7)
  - Product use in unapproved indication [Unknown]
  - Hypertension [Recovering/Resolving]
  - Drug level increased [Recovering/Resolving]
  - Tachycardia [Recovering/Resolving]
  - Cytomegalovirus infection [Recovering/Resolving]
  - Thrombotic microangiopathy [Recovering/Resolving]
  - Posterior reversible encephalopathy syndrome [Recovering/Resolving]
